FAERS Safety Report 5496928-4 (Version None)
Quarter: 2007Q4

REPORT INFORMATION
  Report Type: 
  Country: None (occurrence: None)
  Receive Date: 20071025
  Receipt Date: 20071024
  Transmission Date: 20080405
  Serious: Yes (Other)
  Sender: FDA-Public Use
  Company Number: A0689540A

PATIENT
  Age: 63 Year
  Sex: Female

DRUGS (2)
  1. ALLI [Suspect]
     Route: 048
  2. CIPROFLOXACIN [Suspect]

REACTIONS (8)
  - ALANINE AMINOTRANSFERASE INCREASED [None]
  - ASPARTATE AMINOTRANSFERASE INCREASED [None]
  - CYSTITIS [None]
  - FEELING HOT [None]
  - HYPERSENSITIVITY [None]
  - INFLAMMATION [None]
  - PRURITUS GENERALISED [None]
  - RASH [None]
